FAERS Safety Report 21360365 (Version 3)
Quarter: 2022Q4

REPORT INFORMATION
  Report Type: Spontaneous
  Country: FR (occurrence: FR)
  Receive Date: 20220921
  Receipt Date: 20221011
  Transmission Date: 20230113
  Serious: Yes (Death, Other)
  Sender: FDA-Public Use
  Company Number: FR-GSKCCFEMEA-Case-01573921_AE-62331

PATIENT

DRUGS (1)
  1. ANORO ELLIPTA [Suspect]
     Active Substance: UMECLIDINIUM BROMIDE\VILANTEROL TRIFENATATE
     Indication: Product used for unknown indication
     Dosage: UNK

REACTIONS (5)
  - Angina pectoris [Fatal]
  - Decreased appetite [Fatal]
  - Nausea [Fatal]
  - Malaise [Unknown]
  - Accidental exposure to product packaging [Unknown]

NARRATIVE: CASE EVENT DATE: 20220901
